FAERS Safety Report 6818404-6 (Version None)
Quarter: 2010Q3

REPORT INFORMATION
  Report Type: 
  Country: None (occurrence: None)
  Receive Date: 20100706
  Receipt Date: 20071228
  Transmission Date: 20110219
  Serious: No
  Sender: FDA-Public Use
  Company Number: US-PFIZER INC-2008000021

PATIENT
  Sex: Female
  Weight: 50 kg

DRUGS (12)
  1. ZITHROMAX [Suspect]
     Indication: BRONCHIAL DISORDER
     Dates: start: 20071227, end: 20071228
  2. ZITHROMAX [Suspect]
     Indication: OEDEMA PERIPHERAL
  3. ZITHROMAX [Suspect]
     Indication: COUGH
  4. TOPROL-XL [Concomitant]
  5. LORAZEPAM [Concomitant]
  6. FOSAMAX [Concomitant]
  7. PERCOCET [Concomitant]
  8. NORVASC [Concomitant]
  9. ACETYLSALICYLIC ACID [Concomitant]
  10. ATACAND HCT [Concomitant]
  11. ALL OTHER THERAPEUTIC PRODUCTS [Concomitant]
  12. MULTI-VITAMINS [Concomitant]

REACTIONS (5)
  - FEELING ABNORMAL [None]
  - MALAISE [None]
  - NAUSEA [None]
  - SOMNOLENCE [None]
  - VOMITING [None]
